FAERS Safety Report 9012509 (Version 2)
Quarter: 2013Q1

REPORT INFORMATION
  Report Type: Spontaneous
  Country: US (occurrence: US)
  Receive Date: 20130114
  Receipt Date: 20130123
  Transmission Date: 20140127
  Serious: No
  Sender: FDA-Public Use
  Company Number: US-PFIZER INC-2013014499

PATIENT
  Age: 19 Year
  Sex: Male
  Weight: 63.49 kg

DRUGS (3)
  1. NEURONTIN [Suspect]
     Indication: NEUROPATHY PERIPHERAL
     Dosage: 100 MG, 2X/DAY
     Dates: start: 2012, end: 2012
  2. CYMBALTA [Suspect]
     Indication: NEUROPATHY PERIPHERAL
     Dosage: UNK
  3. NORCO [Concomitant]
     Indication: PAIN
     Dosage: 20/650 MG (2 TABLETS OF 10/325 MG), 3X/DAY

REACTIONS (1)
  - Rash generalised [Recovered/Resolved]
